FAERS Safety Report 19947104 (Version 1)
Quarter: 2021Q4

REPORT INFORMATION
  Report Type: Spontaneous
  Country: US (occurrence: US)
  Receive Date: 20211013
  Receipt Date: 20211013
  Transmission Date: 20220303
  Serious: Yes (Other)
  Sender: FDA-Public Use
  Company Number: US-JNJFOC-20211009075

PATIENT
  Sex: Female

DRUGS (1)
  1. TYLENOL 8 HR ARTHRITIS PAIN [Suspect]
     Active Substance: ACETAMINOPHEN
     Indication: Back pain
     Dosage: 1 TABLET A DAY
     Route: 065
     Dates: start: 20211002

REACTIONS (1)
  - Rectal haemorrhage [Unknown]

NARRATIVE: CASE EVENT DATE: 20211001
